FAERS Safety Report 12739917 (Version 2)
Quarter: 2016Q3

REPORT INFORMATION
  Report Type: Spontaneous
  Country: SI (occurrence: SI)
  Receive Date: 20160913
  Receipt Date: 20160919
  Transmission Date: 20161109
  Serious: Yes (Hospitalization)
  Sender: FDA-Public Use
  Company Number: SI-JNJFOC-20160909569

PATIENT
  Age: 71 Year
  Sex: Male

DRUGS (7)
  1. XARELTO [Suspect]
     Active Substance: RIVAROXABAN
     Indication: CEREBROVASCULAR ACCIDENT PROPHYLAXIS
     Route: 048
     Dates: start: 20160613, end: 20160810
  2. ASPIRIN PROTECT [Concomitant]
     Active Substance: ASPIRIN
     Route: 065
     Dates: start: 20160513, end: 20160810
  3. AMPRIL [Concomitant]
     Indication: HYPERTENSION
     Route: 065
  4. XARELTO [Suspect]
     Active Substance: RIVAROXABAN
     Indication: ATRIAL FIBRILLATION
     Route: 048
     Dates: start: 20160613, end: 20160810
  5. XARELTO [Suspect]
     Active Substance: RIVAROXABAN
     Indication: CARDIOVERSION
     Route: 048
     Dates: start: 20160613, end: 20160810
  6. CONCOR [Concomitant]
     Active Substance: BISOPROLOL FUMARATE
     Indication: HYPERTENSION
     Route: 065
  7. FLURBIPROFEN. [Concomitant]
     Active Substance: FLURBIPROFEN
     Route: 065

REACTIONS (6)
  - Skull fractured base [Unknown]
  - Fall [Unknown]
  - Subarachnoid haemorrhage [Recovered/Resolved]
  - Haematotympanum [Unknown]
  - Periorbital haemorrhage [Unknown]
  - Skull fracture [Unknown]

NARRATIVE: CASE EVENT DATE: 20160810
